FAERS Safety Report 8179526-3 (Version None)
Quarter: 2012Q1

REPORT INFORMATION
  Report Type: 
  Country: None (occurrence: None)
  Receive Date: 20120229
  Receipt Date: 20120229
  Transmission Date: 20120608
  Serious: No
  Sender: FDA-Public Use
  Company Number: None

PATIENT
  Sex: Female
  Weight: 45.3597 kg

DRUGS (5)
  1. LASTACAFT [Suspect]
     Indication: SEASONAL ALLERGY
     Dosage: 1 DROP IN EACH EYE 1X DAY EYE DROP
     Dates: start: 20120130
  2. LASTACAFT [Suspect]
     Indication: SEASONAL ALLERGY
     Dosage: 1 DROP IN EACH EYE 1X DAY EYE DROP
     Dates: start: 20120201
  3. LASTACAFT [Suspect]
     Indication: SEASONAL ALLERGY
     Dosage: 1 DROP IN EACH EYE 1X DAY EYE DROP
     Dates: start: 20120202
  4. LASTACAFT [Suspect]
     Indication: SEASONAL ALLERGY
     Dosage: 1 DROP IN EACH EYE 1X DAY EYE DROP
     Dates: start: 20120131
  5. LASTACAFT [Suspect]
     Indication: SEASONAL ALLERGY
     Dosage: 1 DROP IN EACH EYE 1X DAY EYE DROP
     Dates: start: 20120210

REACTIONS (6)
  - EYE SWELLING [None]
  - OCULAR HYPERAEMIA [None]
  - LACRIMATION INCREASED [None]
  - CONDITION AGGRAVATED [None]
  - EYE PAIN [None]
  - EYE PRURITUS [None]
